FAERS Safety Report 24721948 (Version 1)
Quarter: 2024Q4

REPORT INFORMATION
  Report Type: Spontaneous
  Country: US (occurrence: US)
  Receive Date: 20241211
  Receipt Date: 20241211
  Transmission Date: 20250115
  Serious: Yes (Other)
  Sender: MYLAN
  Company Number: US-MYLANLABS-2024M1109827

PATIENT
  Age: 78 Year
  Sex: Female
  Weight: 63.5 kg

DRUGS (2)
  1. BREYNA [Suspect]
     Active Substance: BUDESONIDE\FORMOTEROL FUMARATE
     Indication: Asthma
     Dosage: 320/9 MICROGRAM, BID (TWO PUFFS, TWICE A DAY)
     Route: 055
     Dates: start: 20241129, end: 20241202
  2. GLUTATHIONE [Concomitant]
     Active Substance: GLUTATHIONE
     Dosage: UNK
     Route: 065
     Dates: start: 20241203

REACTIONS (13)
  - Pulmonary congestion [Recovering/Resolving]
  - Secretion discharge [Recovering/Resolving]
  - Asthma [Recovering/Resolving]
  - Oral discomfort [Recovering/Resolving]
  - Chest pain [Recovering/Resolving]
  - Illness [Unknown]
  - Sinus congestion [Unknown]
  - Tongue discomfort [Recovering/Resolving]
  - Cough [Recovering/Resolving]
  - Wheezing [Recovering/Resolving]
  - Nausea [Unknown]
  - Fatigue [Unknown]
  - Device issue [Unknown]

NARRATIVE: CASE EVENT DATE: 20241201
